FAERS Safety Report 9371039 (Version 3)
Quarter: 2013Q4

REPORT INFORMATION
  Report Type: Spontaneous
  Country: DK (occurrence: DK)
  Receive Date: 20130627
  Receipt Date: 20131216
  Transmission Date: 20140711
  Serious: Yes (Other)
  Sender: FDA-Public Use
  Company Number: DK-PFIZER INC-2013188160

PATIENT
  Age: 63 Year
  Sex: Male
  Weight: 88 kg

DRUGS (4)
  1. ZARATOR [Suspect]
     Indication: HYPERCHOLESTEROLAEMIA
     Dosage: 40 MG, 1X/DAY
     Dates: start: 20111123, end: 201302
  2. LANTUS SOLOSTAR [Concomitant]
     Indication: DIABETES MELLITUS
     Dosage: DOSE: 43IE/ML DAILY, STRENGTH: 100 E/ML
     Route: 058
     Dates: start: 20110630
  3. ELTROXIN [Concomitant]
     Indication: MYXOEDEMA
     Dosage: 13 TABLETS OF 100 UG PER WEEK
     Dates: start: 1983
  4. HJERTEMAGNYL [Concomitant]
     Indication: ANTICOAGULANT THERAPY
     Dosage: 75 MG, 1X/DAY
     Dates: start: 20110911

REACTIONS (5)
  - Hepatitis A [Recovering/Resolving]
  - Malaise [Recovered/Resolved]
  - Asthenia [Recovered/Resolved]
  - Fatigue [Recovered/Resolved]
  - Dizziness [Recovered/Resolved]
